FAERS Safety Report 9902107 (Version 1)
Quarter: 2014Q1

REPORT INFORMATION
  Report Type: Spontaneous
  Country: US (occurrence: US)
  Receive Date: 20140217
  Receipt Date: 20140217
  Transmission Date: 20141002
  Serious: Yes (Other)
  Sender: FDA-Public Use
  Company Number: US-JNJFOC-20140206066

PATIENT
  Sex: Male

DRUGS (1)
  1. INVOKANA [Suspect]
     Indication: DIABETES MELLITUS
     Route: 048
     Dates: start: 201311

REACTIONS (1)
  - Weight decreased [Unknown]
